FAERS Safety Report 13713230 (Version 1)
Quarter: 2017Q3

REPORT INFORMATION
  Report Type: Spontaneous
  Country: US (occurrence: US)
  Receive Date: 20170704
  Receipt Date: 20170704
  Transmission Date: 20171127
  Serious: No
  Sender: FDA-Public Use
  Company Number: US-TEVA-729430ACC

PATIENT
  Age: 68 Year
  Sex: Female
  Weight: 61 kg

DRUGS (1)
  1. PREDNISONE 10MG [Suspect]
     Active Substance: PREDNISONE
     Indication: WHEEZING
     Dates: start: 20170109, end: 201701

REACTIONS (1)
  - Tinnitus [Not Recovered/Not Resolved]

NARRATIVE: CASE EVENT DATE: 20170109
